FAERS Safety Report 21840373 (Version 7)
Quarter: 2024Q1

REPORT INFORMATION
  Report Type: Report from Study
  Country: US (occurrence: US)
  Receive Date: 20230110
  Receipt Date: 20240321
  Transmission Date: 20240410
  Serious: Yes (Other)
  Sender: FDA-Public Use
  Company Number: US-002147023-NVSC2023US004578

PATIENT
  Sex: Female

DRUGS (1)
  1. KISQALI [Suspect]
     Active Substance: RIBOCICLIB
     Indication: Product used for unknown indication
     Dosage: 200 MG, TID
     Route: 065

REACTIONS (8)
  - Bradycardia [Unknown]
  - Pain of skin [Unknown]
  - Onychoclasis [Unknown]
  - Vision blurred [Unknown]
  - Dyspnoea [Unknown]
  - Alopecia [Unknown]
  - Disease progression [Unknown]
  - Liver disorder [Recovered/Resolved]
